FAERS Safety Report 7988347-3 (Version None)
Quarter: 2011Q4

REPORT INFORMATION
  Report Type: 
  Country: None (occurrence: None)
  Receive Date: 20111216
  Receipt Date: 20111207
  Transmission Date: 20120403
  Serious: Yes (Life-Threatening)
  Sender: FDA-Public Use
  Company Number: MW-ABBOTT-11P-100-0848680-00

PATIENT
  Sex: Female
  Weight: 39.4 kg

DRUGS (3)
  1. COTRIMAXAZOLE [Concomitant]
     Indication: PRODUCT USED FOR UNKNOWN INDICATION
  2. LOPINAVIR/RITONAVIR [Suspect]
     Indication: PROPHYLAXIS AGAINST HIV INFECTION
     Dosage: 400MG/100MG
     Route: 048
     Dates: start: 20100114, end: 20100412
  3. COMBIVIR [Concomitant]
     Indication: PROPHYLAXIS AGAINST HIV INFECTION
     Dosage: 300MG/150MG
     Route: 048
     Dates: start: 20100114, end: 20100412

REACTIONS (1)
  - PLATELET COUNT DECREASED [None]
